FAERS Safety Report 10305460 (Version 1)
Quarter: 2014Q3

REPORT INFORMATION
  Report Type: Spontaneous
  Country: US (occurrence: None)
  Receive Date: 20140710
  Receipt Date: 20140710
  Transmission Date: 20150326
  Serious: Yes (Hospitalization)
  Sender: FDA-Public Use
  Company Number: HYP201406-000039

PATIENT
  Age: 9 Year
  Sex: Male
  Weight: 28.6 kg

DRUGS (5)
  1. OXYBUTYNIN (OXYBUTYNIN) [Concomitant]
     Active Substance: OXYBUTYNIN
  2. ARGININE (AGININE) [Concomitant]
  3. SODIUM BENZOATE (SODIUM BENZOATE) [Concomitant]
  4. AMINO ACIDS [Concomitant]
     Active Substance: AMINO ACIDS
  5. RAVICTI [Suspect]
     Active Substance: GLYCEROL PHENYLBUTYRATE
     Indication: AMINO ACID METABOLISM DISORDER
     Dates: start: 20140416, end: 20140427

REACTIONS (13)
  - Diarrhoea [None]
  - Mutism [None]
  - Screaming [None]
  - Slow speech [None]
  - Confusional state [None]
  - Psychotic disorder [None]
  - Vomiting [None]
  - Encephalitis autoimmune [None]
  - Anxiety [None]
  - Abdominal pain [None]
  - Mental status changes [None]
  - Decreased activity [None]
  - Somnolence [None]

NARRATIVE: CASE EVENT DATE: 20140427
